FAERS Safety Report 20956329 (Version 1)
Quarter: 2022Q2

REPORT INFORMATION
  Report Type: Spontaneous
  Country: US (occurrence: US)
  Receive Date: 20220614
  Receipt Date: 20220614
  Transmission Date: 20220721
  Serious: Yes (Hospitalization, Other)
  Sender: FDA-Public Use
  Company Number: US-GLAXOSMITHKLINE-US2022091600

PATIENT

DRUGS (1)
  1. BREO ELLIPTA [Suspect]
     Active Substance: FLUTICASONE FUROATE\VILANTEROL TRIFENATATE
     Indication: Chronic obstructive pulmonary disease
     Dosage: 1 PUFF(S), BID 200-25MCG
     Dates: start: 201701

REACTIONS (6)
  - Enteritis infectious [Recovering/Resolving]
  - Myocardial infarction [Recovering/Resolving]
  - Cerebrovascular accident [Recovering/Resolving]
  - Visual impairment [Recovering/Resolving]
  - Hepatic cancer [Not Recovered/Not Resolved]
  - Bone cancer [Not Recovered/Not Resolved]

NARRATIVE: CASE EVENT DATE: 20190101
